FAERS Safety Report 5132603-3 (Version None)
Quarter: 2006Q4

REPORT INFORMATION
  Report Type: 
  Country: None (occurrence: None)
  Receive Date: 20061020
  Receipt Date: 20061020
  Transmission Date: 20070319
  Serious: No
  Sender: FDA-Public Use
  Company Number: None

PATIENT
  Age: 28 Year
  Sex: Male
  Weight: 73 kg

DRUGS (1)
  1. TERVINAFINE  250 MG [Suspect]
     Dosage: 250 MG   DAILY   PO
     Route: 048

REACTIONS (1)
  - VISION BLURRED [None]
